FAERS Safety Report 24250257 (Version 1)
Quarter: 2024Q3

REPORT INFORMATION
  Report Type: Spontaneous
  Country: CN (occurrence: CN)
  Receive Date: 20240826
  Receipt Date: 20240826
  Transmission Date: 20241016
  Serious: Yes (Hospitalization)
  Sender: BEIGENE
  Company Number: CN-BEIGENE-BGN-2024-012985

PATIENT

DRUGS (4)
  1. TISLELIZUMAB [Suspect]
     Active Substance: TISLELIZUMAB
     Indication: Cervix carcinoma
     Dosage: 200 MILLIGRAM
     Route: 041
     Dates: start: 20240720
  2. CARBOPLATIN [Suspect]
     Active Substance: CARBOPLATIN
     Indication: Cervix carcinoma
     Dosage: 0.45 GRAM
     Route: 041
     Dates: start: 20240721
  3. PACLITAXEL [Suspect]
     Active Substance: PACLITAXEL
     Indication: Cervix carcinoma
     Dosage: 200 MILLIGRAM
     Route: 041
     Dates: start: 20240721
  4. PACLITAXEL [Suspect]
     Active Substance: PACLITAXEL
     Dosage: 150 MILLIGRAM
     Route: 041
     Dates: start: 20240722

REACTIONS (1)
  - Myelosuppression [Recovering/Resolving]

NARRATIVE: CASE EVENT DATE: 20240723
